FAERS Safety Report 23149856 (Version 2)
Quarter: 2023Q4

REPORT INFORMATION
  Report Type: Spontaneous
  Country: CN (occurrence: CN)
  Receive Date: 20231106
  Receipt Date: 20231115
  Transmission Date: 20240110
  Serious: Yes (Other)
  Sender: FDA-Public Use
  Company Number: CN-MYLANLABS-2023M1116733

PATIENT
  Sex: Male

DRUGS (1)
  1. CELEBREX [Suspect]
     Active Substance: CELECOXIB
     Indication: Muscle rigidity
     Dosage: 200 MILLIGRAM, (WITH IRREGULAR FREQUENCY)
     Route: 065

REACTIONS (3)
  - Deafness [Unknown]
  - Hypertension [Unknown]
  - Pancreatic cyst [Unknown]
